FAERS Safety Report 19203760 (Version 2)
Quarter: 2021Q2

REPORT INFORMATION
  Report Type: Spontaneous
  Country: GB (occurrence: GB)
  Receive Date: 20210503
  Receipt Date: 20210516
  Transmission Date: 20210717
  Serious: Yes (Other)
  Sender: FDA-Public Use
  Company Number: GB-AUROBINDO-AUR-APL-2021-017317

PATIENT
  Age: 36 Year
  Sex: Male
  Weight: 70 kg

DRUGS (1)
  1. MIRTAZAPINE. [Suspect]
     Active Substance: MIRTAZAPINE
     Indication: ILL-DEFINED DISORDER
     Dosage: 30 MILLIGRAM
     Route: 048
     Dates: start: 20191001

REACTIONS (5)
  - Tinnitus [Not Recovered/Not Resolved]
  - Medication error [Unknown]
  - Therapy change [Unknown]
  - Hyperacusis [Not Recovered/Not Resolved]
  - Adverse drug reaction [Not Recovered/Not Resolved]

NARRATIVE: CASE EVENT DATE: 20201217
